FAERS Safety Report 9734764 (Version 1)
Quarter: 2013Q4

REPORT INFORMATION
  Report Type: Spontaneous
  Country: US (occurrence: US)
  Receive Date: 20131206
  Receipt Date: 20131206
  Transmission Date: 20140711
  Serious: Yes (Hospitalization, Other)
  Sender: FDA-Public Use
  Company Number: US-AMGEN-USASP2013085403

PATIENT
  Age: 50 Year
  Sex: Female

DRUGS (2)
  1. ENBREL [Suspect]
     Indication: RHEUMATOID ARTHRITIS
     Dosage: 50 MG, QWK
     Route: 065
     Dates: start: 20130829, end: 20131017
  2. METHOTREXATE [Concomitant]
     Dosage: 15 MG, QWK
     Dates: start: 2012

REACTIONS (11)
  - Menorrhagia [Not Recovered/Not Resolved]
  - Activated partial thromboplastin time prolonged [Unknown]
  - Coagulopathy [Unknown]
  - Post procedural haemorrhage [Not Recovered/Not Resolved]
  - Haemorrhagic anaemia [Unknown]
  - Haemoptysis [Recovered/Resolved]
  - Malaise [Not Recovered/Not Resolved]
  - Dizziness [Not Recovered/Not Resolved]
  - Asthenia [Not Recovered/Not Resolved]
  - Fatigue [Not Recovered/Not Resolved]
  - Upper-airway cough syndrome [Not Recovered/Not Resolved]
